FAERS Safety Report 8060425-2 (Version None)
Quarter: 2012Q1

REPORT INFORMATION
  Report Type: 
  Country: None (occurrence: None)
  Receive Date: 20120118
  Receipt Date: 20120118
  Transmission Date: 20120608
  Serious: Yes (Other)
  Sender: FDA-Public Use
  Company Number: None

PATIENT
  Sex: Male
  Weight: 36.1 kg

DRUGS (1)
  1. LEVETIRACETAM [Suspect]
     Dosage: 500MG 2 TABS BID ORAL ROUTE
     Route: 048
     Dates: start: 20100520, end: 20100601

REACTIONS (3)
  - CONVULSION [None]
  - CONDITION AGGRAVATED [None]
  - PRODUCT SUBSTITUTION ISSUE [None]
